FAERS Safety Report 13278971 (Version 2)
Quarter: 2017Q2

REPORT INFORMATION
  Report Type: Spontaneous
  Country: US (occurrence: US)
  Receive Date: 20170228
  Receipt Date: 20170419
  Transmission Date: 20170830
  Serious: No
  Sender: FDA-Public Use
  Company Number: US-009507513-1702USA008783

PATIENT
  Sex: Female

DRUGS (9)
  1. LEXAPRO [Concomitant]
     Active Substance: ESCITALOPRAM OXALATE
  2. CALCIUM (UNSPECIFIED) [Concomitant]
     Active Substance: CALCIUM
  3. PRILOSEC [Concomitant]
     Active Substance: OMEPRAZOLE MAGNESIUM
  4. ALENDRONATE SODIUM. [Concomitant]
     Active Substance: ALENDRONATE SODIUM
  5. PROLIA [Concomitant]
     Active Substance: DENOSUMAB
  6. DITROPAN [Concomitant]
     Active Substance: OXYBUTYNIN CHLORIDE
  7. ORNEX (ACETAMINOPHEN (+) PHENYLPROPANOLAMINE HYDROCHLORIDE) [Concomitant]
  8. INTRON A [Suspect]
     Active Substance: INTERFERON ALFA-2B
     Indication: POLYCYTHAEMIA
     Dosage: 2.5 MILLION IU(MU), TWICE WEEKLY
     Route: 058
     Dates: start: 20150814
  9. VITAMINS (UNSPECIFIED) [Concomitant]
     Active Substance: VITAMINS

REACTIONS (1)
  - Dizziness [Not Recovered/Not Resolved]
